FAERS Safety Report 6269479-7 (Version None)
Quarter: 2009Q3

REPORT INFORMATION
  Report Type: 
  Country: None (occurrence: None)
  Receive Date: 20090715
  Receipt Date: 20090710
  Transmission Date: 20100115
  Serious: Yes (Other)
  Sender: FDA-Public Use
  Company Number: US-GILEAD-2009-0023068

PATIENT
  Sex: Male
  Weight: 133.02 kg

DRUGS (12)
  1. LETAIRIS [Suspect]
     Indication: PULMONARY ARTERIAL HYPERTENSION
     Route: 048
     Dates: start: 20090615
  2. SINGULAIR [Concomitant]
  3. ZOCOR [Concomitant]
  4. IMDUR [Concomitant]
  5. LEVEMIR [Concomitant]
  6. SYMBICORT [Concomitant]
  7. FLOMAX [Concomitant]
  8. ASPIRIN [Concomitant]
  9. BENADRYL [Concomitant]
  10. TOPROL-XL [Concomitant]
  11. VITAMIN B COMPLEX CAP [Concomitant]
  12. ASCORBIC ACID [Concomitant]

REACTIONS (1)
  - CEREBROVASCULAR ACCIDENT [None]
